FAERS Safety Report 25886204 (Version 1)
Quarter: 2025Q4

REPORT INFORMATION
  Report Type: Spontaneous
  Country: US (occurrence: US)
  Receive Date: 20251006
  Receipt Date: 20251006
  Transmission Date: 20260118
  Serious: No
  Sender: PFIZER
  Company Number: US-PFIZER INC-PV202200090350

PATIENT
  Age: 67 Year
  Sex: Female
  Weight: 80.272 kg

DRUGS (9)
  1. IBRANCE [Suspect]
     Active Substance: PALBOCICLIB
     Indication: Breast cancer female
     Dosage: 100 MG, CYCLIC (TAKE 1 TABLET (100 MG TOTAL) DAILY FOR 21 DAYS, THEN 7 DAYS OFF; SWALLOW WHOLE)
     Route: 048
     Dates: start: 20221006
  2. SERTRALINE [Concomitant]
     Active Substance: SERTRALINE HYDROCHLORIDE
     Indication: Major depression
     Dosage: 100 MG
  3. PROLIA [Concomitant]
     Active Substance: DENOSUMAB
     Indication: Osteoporosis
     Dosage: (CONSUME STATED, ^I TAKE PROLIA INJECTIONS EVERY 6 MONTHS)
  4. LATANOPROST [Concomitant]
     Active Substance: LATANOPROST
     Indication: Normal tension glaucoma
     Dosage: UNK
  5. DORZOLAMIDE [Concomitant]
     Active Substance: DORZOLAMIDE
     Indication: Normal tension glaucoma
     Dosage: UNK
  6. TIMOLOL [Concomitant]
     Active Substance: TIMOLOL
     Indication: Normal tension glaucoma
     Dosage: UNK
  7. BRIMONIDINE [Concomitant]
     Active Substance: BRIMONIDINE TARTRATE
     Indication: Normal tension glaucoma
     Dosage: UNK
  8. MONTELUKAST [Concomitant]
     Active Substance: MONTELUKAST
     Indication: Hypersensitivity
     Dosage: 25 MG, 1X/DAY (FOR ALLERGIES. I THINK THAT IS 25 MILLIGRAMS)
  9. EXEMESTANE [Concomitant]
     Active Substance: EXEMESTANE
     Dosage: UNK, (CONSUMER STATED, ^I THINK THAT IS 10 MILLIGRAMS)

REACTIONS (1)
  - Rhinitis [Unknown]
